FAERS Safety Report 19906152 (Version 1)
Quarter: 2021Q4

REPORT INFORMATION
  Report Type: Report from Study
  Country: IT (occurrence: IT)
  Receive Date: 20211001
  Receipt Date: 20211001
  Transmission Date: 20220303
  Serious: Yes (Hospitalization)
  Sender: FDA-Public Use
  Company Number: None

PATIENT
  Age: 74 Year
  Sex: Male

DRUGS (2)
  1. VALPROATE SODIUM [Suspect]
     Active Substance: VALPROATE SODIUM
     Dates: start: 20210825, end: 20210825
  2. OLANZAPINE [Suspect]
     Active Substance: OLANZAPINE
     Dosage: ADDITIONAL INFO : ABUSE / MISUSE
     Dates: start: 20210825, end: 20210825

REACTIONS (1)
  - Sopor [Unknown]

NARRATIVE: CASE EVENT DATE: 20210825
